FAERS Safety Report 4652943-1 (Version None)
Quarter: 2005Q2

REPORT INFORMATION
  Report Type: 
  Country: None (occurrence: None)
  Receive Date: 20050503
  Receipt Date: 20050422
  Transmission Date: 20051028
  Serious: Yes (Hospitalization)
  Sender: FDA-Public Use
  Company Number: 22463

PATIENT
  Age: 68 Year
  Sex: Male
  Weight: 125.6464 kg

DRUGS (15)
  1. NIASPAN [Suspect]
     Indication: BLOOD CHOLESTEROL INCREASED
     Dosage: 500 MG QHS PO
     Route: 048
     Dates: start: 20050413, end: 20050417
  2. ASPIRIN [Suspect]
     Indication: FLUSHING
     Dosage: 81 MG QHS PO
     Route: 048
     Dates: start: 20050413, end: 20050417
  3. ASPIRIN [Suspect]
     Indication: PROPHYLAXIS
     Dosage: 81 MG QHS PO
     Route: 048
     Dates: start: 20050413, end: 20050417
  4. AVANDIA [Concomitant]
  5. HYZAAR [Concomitant]
  6. LOPRESSOR [Concomitant]
  7. ALLOPURINOL [Concomitant]
  8. FOLTX [Concomitant]
  9. CLARINEX /USA/ [Concomitant]
  10. COUMADIN [Concomitant]
  11. PRAVACHOL [Concomitant]
  12. ADVAIR DISKUS 100/50 [Concomitant]
  13. COENZYME [Concomitant]
  14. ZETIA/USA/ [Concomitant]
  15. FOLIC ACID [Concomitant]

REACTIONS (2)
  - POLYP [None]
  - RECTAL HAEMORRHAGE [None]
